FAERS Safety Report 9917681 (Version 1)
Quarter: 2014Q1

REPORT INFORMATION
  Report Type: Spontaneous
  Country: US (occurrence: US)
  Receive Date: 20140221
  Receipt Date: 20140221
  Transmission Date: 20141002
  Serious: No
  Sender: FDA-Public Use
  Company Number: US-009507513-1402USA007827

PATIENT
  Age: 58 Year
  Sex: Male

DRUGS (1)
  1. PRINIVIL [Suspect]
     Dosage: 40 MG, QD
     Route: 048

REACTIONS (1)
  - Angioedema [Recovered/Resolved]
